FAERS Safety Report 10072428 (Version 3)
Quarter: 2014Q2

REPORT INFORMATION
  Report Type: Report from Study
  Country: DE (occurrence: DE)
  Receive Date: 20140411
  Receipt Date: 20140616
  Transmission Date: 20141212
  Serious: Yes (Other)
  Sender: FDA-Public Use
  Company Number: DE-NOVOPROD-405697

PATIENT
  Age: 10 Year
  Sex: Male
  Weight: 44.6 kg

DRUGS (1)
  1. NORDITROPIN FLEXPRO 6.7 MG/ML [Suspect]
     Indication: GROWTH HORMONE DEFICIENCY
     Dosage: DAILY DOSE: 1.0
     Route: 058
     Dates: start: 20130401

REACTIONS (1)
  - Exostosis [Not Recovered/Not Resolved]
